FAERS Safety Report 24315948 (Version 1)
Quarter: 2024Q3

REPORT INFORMATION
  Report Type: Spontaneous
  Country: AU (occurrence: AU)
  Receive Date: 20240913
  Receipt Date: 20240913
  Transmission Date: 20241016
  Serious: Yes (Hospitalization)
  Sender: RANBAXY
  Company Number: AU-SUN PHARMACEUTICAL INDUSTRIES LTD-2024R1-466709

PATIENT
  Age: 76 Year
  Sex: Male

DRUGS (8)
  1. MEMANTINE [Suspect]
     Active Substance: MEMANTINE
     Indication: Neuropsychological symptoms
     Dosage: 15 MILLIGRAM
     Route: 065
  2. CARBAMAZEPINE [Suspect]
     Active Substance: CARBAMAZEPINE
     Indication: Neuropsychological symptoms
     Dosage: UNK
     Route: 065
  3. FLUOXETINE [Suspect]
     Active Substance: FLUOXETINE HYDROCHLORIDE
     Indication: Neuropsychological symptoms
     Dosage: UNK
     Route: 065
  4. HALOPERIDOL [Suspect]
     Active Substance: HALOPERIDOL
     Indication: Neuropsychological symptoms
     Dosage: 5 MILLIGRAM, DAILY
     Route: 065
  5. PRAZOSIN [Suspect]
     Active Substance: PRAZOSIN\PRAZOSIN HYDROCHLORIDE
     Indication: Neuropsychological symptoms
     Dosage: UNK
     Route: 065
  6. QUETIAPINE [Suspect]
     Active Substance: QUETIAPINE
     Indication: Neuropsychological symptoms
     Dosage: 400 MILLIGRAM, DAILY
     Route: 065
  7. VALPROATE SODIUM [Suspect]
     Active Substance: VALPROATE SODIUM
     Indication: Neuropsychological symptoms
     Dosage: UNK
     Route: 065
  8. RIVASTIGMINE [Suspect]
     Active Substance: RIVASTIGMINE
     Indication: Neuropsychological symptoms
     Dosage: 9.5 MILLIGRAM, DAILY
     Route: 065

REACTIONS (3)
  - Drug ineffective [Unknown]
  - Drug ineffective for unapproved indication [Unknown]
  - Off label use [Unknown]
